FAERS Safety Report 8448854-6 (Version None)
Quarter: 2012Q2

REPORT INFORMATION
  Report Type: 
  Country: None (occurrence: None)
  Receive Date: 20120613
  Receipt Date: 20120529
  Transmission Date: 20120825
  Serious: Yes (Hospitalization)
  Sender: FDA-Public Use
  Company Number: 217414

PATIENT
  Age: 125 Month
  Sex: Male

DRUGS (1)
  1. INNOHEP [Suspect]
     Indication: THROMBOSIS IN DEVICE
     Dosage: (175 IU/KG)

REACTIONS (4)
  - PULMONARY EMBOLISM [None]
  - RENAL TRANSPLANT [None]
  - THROMBOSIS IN DEVICE [None]
  - TRANSPLANT FAILURE [None]
